FAERS Safety Report 5625169-2 (Version None)
Quarter: 2008Q1

REPORT INFORMATION
  Report Type: 
  Country: None (occurrence: None)
  Receive Date: 20080213
  Receipt Date: 20080204
  Transmission Date: 20080703
  Serious: Yes (Other)
  Sender: FDA-Public Use
  Company Number: GB-PFIZER INC-2007039683

PATIENT
  Sex: Male

DRUGS (9)
  1. EXUBERA [Suspect]
     Indication: DIABETES MELLITUS
     Route: 055
     Dates: start: 20070430, end: 20071114
  2. GLICLAZIDE [Concomitant]
  3. METFORMIN HCL [Concomitant]
  4. ACETYLSALICYLIC ACID SRT [Concomitant]
  5. NICORANDIL [Concomitant]
  6. PARIET [Concomitant]
  7. WARFARIN SODIUM [Concomitant]
  8. LIPITOR [Concomitant]
  9. ATENOLOL [Concomitant]

REACTIONS (2)
  - BLOOD GLUCOSE INCREASED [None]
  - HYPOGLYCAEMIA [None]
